FAERS Safety Report 6877019-4 (Version None)
Quarter: 2010Q3

REPORT INFORMATION
  Report Type: 
  Country: None (occurrence: None)
  Receive Date: 20100727
  Receipt Date: 20100727
  Transmission Date: 20110219
  Serious: Yes (Other)
  Sender: FDA-Public Use
  Company Number: None

PATIENT
  Age: 64 Year
  Sex: Female
  Weight: 72.5755 kg

DRUGS (1)
  1. FEMARA [Suspect]
     Indication: BREAST CANCER
     Dosage: 2.5MG 1 TABLET DAILY DAILY PO 3 MORE YEARS TO TAKE
     Route: 048
     Dates: start: 20100710

REACTIONS (5)
  - ANAEMIA [None]
  - ASTHENIA [None]
  - PAIN [None]
  - VITAMIN B12 DEFICIENCY [None]
  - VITAMIN D DECREASED [None]
